FAERS Safety Report 17009996 (Version 3)
Quarter: 2020Q1

REPORT INFORMATION
  Report Type: Spontaneous
  Country: US (occurrence: US)
  Receive Date: 20191108
  Receipt Date: 20200109
  Transmission Date: 20200409
  Serious: No
  Sender: FDA-Public Use
  Company Number: US-PFIZER INC-2019483225

PATIENT
  Age: 51 Year
  Sex: Male
  Weight: 95.24 kg

DRUGS (17)
  1. CITALOPRAM HYDROBROMIDE. [Concomitant]
     Active Substance: CITALOPRAM HYDROBROMIDE
     Indication: DEPRESSION
     Dosage: 40 MG, ONCE A DAY, EVERY 3 MONTHS
     Dates: start: 20110111
  2. FENTANYL. [Concomitant]
     Active Substance: FENTANYL
     Indication: BACK PAIN
     Dosage: 100 UG/24H, 1 PATCH EVERY 3 DAYS, EVERY MONTH
  3. LEVEMIR [Concomitant]
     Active Substance: INSULIN DETEMIR
     Indication: BLOOD INSULIN ABNORMAL
     Dosage: 1000 IU/ML, EVERY MONTH (100UNIT/ML SOLUTION PEN INJECTOR/50 UNITS IN AM/50 UNITS IN PM)
  4. MELOXICAM. [Concomitant]
     Active Substance: MELOXICAM
     Indication: COMPRESSION FRACTURE
     Dosage: 15 MG, EVERY MONTH (1X1DAY)
  5. METOPROLOL SUCCINATE. [Concomitant]
     Active Substance: METOPROLOL SUCCINATE
     Indication: PULSE PRESSURE ABNORMAL
  6. MORPHINE SULFATE. [Concomitant]
     Active Substance: MORPHINE SULFATE
     Indication: BACK PAIN
     Dosage: 60 MG, EVERY MONTH (1X2 DAY)
  7. OXYCODONE HYDROCHLORIDE. [Concomitant]
     Active Substance: OXYCODONE HYDROCHLORIDE
     Indication: PAIN
     Dosage: 30 MG, EVERY MONTH (4XDAY)
  8. FENTANYL. [Concomitant]
     Active Substance: FENTANYL
     Indication: PANCREATITIS CHRONIC
  9. MELOXICAM. [Concomitant]
     Active Substance: MELOXICAM
     Indication: BACK PAIN
  10. DULOXETINE. [Concomitant]
     Active Substance: DULOXETINE
     Indication: DIABETIC NEUROPATHY
     Dosage: 60 MG, 1X2DAY, EVERY MONTH
     Dates: start: 20191101
  11. MORPHINE SULFATE. [Concomitant]
     Active Substance: MORPHINE SULFATE
     Indication: PANCREATITIS CHRONIC
  12. BUSPIRONE HYDROCHLORIDE. [Concomitant]
     Active Substance: BUSPIRONE HYDROCHLORIDE
     Indication: PANIC ATTACK
     Dosage: 5 MG, 1X3 DAY, EVERY MONTH
     Dates: start: 20191214
  13. PREGABALIN. [Suspect]
     Active Substance: PREGABALIN
     Indication: DIABETIC NEUROPATHY
     Dosage: 200 MG, THREE TIMES A DAY (1X3 DAY)
     Dates: start: 20131101
  14. PREGABALIN. [Suspect]
     Active Substance: PREGABALIN
     Indication: FIBROMYALGIA
  15. CLONAZEPAM. [Concomitant]
     Active Substance: CLONAZEPAM
     Indication: PANIC ATTACK
     Dosage: 0.5 MG, 1X2 DAY, EVERY MOMTH
     Dates: start: 20191214
  16. FLUTICASONE PROPIONATE. [Concomitant]
     Active Substance: FLUTICASONE PROPIONATE
     Indication: HYPERSENSITIVITY
     Dosage: 50 UG, EVERY MONTH (50MCG/ACT SUSPENSION)
  17. METOPROLOL SUCCINATE. [Concomitant]
     Active Substance: METOPROLOL SUCCINATE
     Indication: BLOOD PRESSURE ABNORMAL
     Dosage: 25 MG, EVERY MONTH (1X2 DAY)

REACTIONS (3)
  - Influenza [Recovered/Resolved]
  - Drug ineffective [Recovered/Resolved]
  - Off label use [Unknown]

NARRATIVE: CASE EVENT DATE: 20131101
